FAERS Safety Report 4608656-5 (Version None)
Quarter: 2005Q1

REPORT INFORMATION
  Report Type: 
  Country: None (occurrence: None)
  Receive Date: 20050315
  Receipt Date: 20050303
  Transmission Date: 20050727
  Serious: Yes (Other)
  Sender: FDA-Public Use
  Company Number: BR-JNJFOC-20050302265

PATIENT
  Age: 3 Year
  Sex: Male
  Weight: 14 kg

DRUGS (1)
  1. HALDOL [Suspect]
     Route: 065

REACTIONS (3)
  - ACCIDENTAL EXPOSURE [None]
  - GLASGOW COMA SCALE ABNORMAL [None]
  - HYPOTONIA [None]
